FAERS Safety Report 11225501 (Version 1)
Quarter: 2015Q2

REPORT INFORMATION
  Report Type: Spontaneous
  Country: US (occurrence: None)
  Receive Date: 20150626
  Receipt Date: 20150626
  Transmission Date: 20150821
  Serious: Yes (Disabling)
  Sender: FDA-Public Use
  Company Number: None

PATIENT
  Age: 38 Year
  Sex: Female
  Weight: 61.24 kg

DRUGS (14)
  1. SIMILASE, BEFORE MEALS (MICROBIAL ENZYMES: AMYLASE, PROTEASE I, II, III, IV, LIPASE I, II, LACTASE I, II, PHYTASE, CELLULASE I, II, SUCRASE, MALTASE) [Concomitant]
  2. VIVELLE DOT [Concomitant]
     Active Substance: ESTRADIOL
  3. TRAZODONE [Suspect]
     Active Substance: TRAZODONE HYDROCHLORIDE
     Indication: INSOMNIA
     Route: 048
  4. FERROCHEL (IRON 27MG) [Concomitant]
  5. BORAGE OIL [Concomitant]
     Active Substance: BORAGE OIL
  6. THERACURMIN [Concomitant]
  7. MAGNESIUM [Concomitant]
     Active Substance: MAGNESIUM
  8. ULTIMATE FLORA VAGINAL SUPPORT (50 BILLION LACTO/BIFIDO CULTURES) [Concomitant]
  9. LEVOXYL [Concomitant]
     Active Substance: LEVOTHYROXINE SODIUM
  10. ESTRADIOL PATCH 0.0375MG MYLAN [Concomitant]
     Active Substance: ESTRADIOL
  11. DHEA [Concomitant]
     Active Substance: DEHYDROEPIANDROSTERONE-3-SULFATE SODIUM
  12. CAL/MAG [Concomitant]
  13. POTASSIUM [Concomitant]
     Active Substance: POTASSIUM
  14. LIOTHYRONINE (CYTOMEL, 5MCG) [Concomitant]

REACTIONS (8)
  - Pain [None]
  - Insomnia [None]
  - Female sexual arousal disorder [None]
  - Depression [None]
  - Drug intolerance [None]
  - Fatigue [None]
  - Drug withdrawal syndrome [None]
  - Irritability [None]

NARRATIVE: CASE EVENT DATE: 20150625
